FAERS Safety Report 19267728 (Version 2)
Quarter: 2021Q2

REPORT INFORMATION
  Report Type: Spontaneous
  Country: US (occurrence: US)
  Receive Date: 20210518
  Receipt Date: 20210603
  Transmission Date: 20210717
  Serious: No
  Sender: FDA-Public Use
  Company Number: US-BIOGEN-2021BI01012004

PATIENT
  Sex: Female

DRUGS (23)
  1. AVONEX [Suspect]
     Active Substance: INTERFERON BETA-1A
  2. AVONEX [Suspect]
     Active Substance: INTERFERON BETA-1A
  3. AVONEX [Suspect]
     Active Substance: INTERFERON BETA-1A
  4. AVONEX [Suspect]
     Active Substance: INTERFERON BETA-1A
  5. AVONEX [Suspect]
     Active Substance: INTERFERON BETA-1A
     Indication: MULTIPLE SCLEROSIS
     Route: 065
     Dates: start: 20170919, end: 20190101
  6. AVONEX [Suspect]
     Active Substance: INTERFERON BETA-1A
  7. LOSARTAN POTASSIUM. [Concomitant]
     Active Substance: LOSARTAN POTASSIUM
     Route: 065
  8. EXEMESTANE. [Concomitant]
     Active Substance: EXEMESTANE
     Route: 065
  9. AVONEX [Suspect]
     Active Substance: INTERFERON BETA-1A
  10. AVONEX [Suspect]
     Active Substance: INTERFERON BETA-1A
  11. TECFIDERA [Suspect]
     Active Substance: DIMETHYL FUMARATE
     Indication: MULTIPLE SCLEROSIS
     Route: 065
     Dates: start: 20151123, end: 20151204
  12. BACLOFEN. [Concomitant]
     Active Substance: BACLOFEN
     Route: 065
  13. LAMICTAL [Concomitant]
     Active Substance: LAMOTRIGINE
     Route: 065
  14. TAMOXIFEN CITRATE. [Concomitant]
     Active Substance: TAMOXIFEN CITRATE
     Route: 065
  15. AVONEX [Suspect]
     Active Substance: INTERFERON BETA-1A
  16. AMLODIPINE BESYLATE. [Concomitant]
     Active Substance: AMLODIPINE BESYLATE
     Route: 065
  17. NEXIUM [Concomitant]
     Active Substance: ESOMEPRAZOLE MAGNESIUM
     Route: 065
  18. AVONEX [Suspect]
     Active Substance: INTERFERON BETA-1A
  19. AVONEX [Suspect]
     Active Substance: INTERFERON BETA-1A
  20. AVONEX [Suspect]
     Active Substance: INTERFERON BETA-1A
  21. EFFEXOR [Concomitant]
     Active Substance: VENLAFAXINE HYDROCHLORIDE
     Route: 065
  22. AVONEX [Suspect]
     Active Substance: INTERFERON BETA-1A
  23. LYRICA [Concomitant]
     Active Substance: PREGABALIN
     Route: 065

REACTIONS (6)
  - Hypoaesthesia [Unknown]
  - Bladder disorder [Unknown]
  - Gastric disorder [Unknown]
  - Road traffic accident [Recovered/Resolved]
  - Paraesthesia [Unknown]
  - Abdominal discomfort [Unknown]
